FAERS Safety Report 5026040-X (Version None)
Quarter: 2006Q2

REPORT INFORMATION
  Report Type: 
  Country: None (occurrence: None)
  Receive Date: 20060614
  Receipt Date: 20060602
  Transmission Date: 20061013
  Serious: Yes (Disabling, Other)
  Sender: FDA-Public Use
  Company Number: GB-BRISTOL-MYERS SQUIBB COMPANY-13400213

PATIENT
  Age: 12 Year
  Sex: Male
  Weight: 49 kg

DRUGS (3)
  1. ABILIFY [Suspect]
     Indication: AUTISM
     Route: 048
     Dates: start: 20060406, end: 20060407
  2. ABILIFY [Suspect]
     Indication: ATTENTION DEFICIT/HYPERACTIVITY DISORDER
     Route: 048
     Dates: start: 20060406, end: 20060407
  3. ABILIFY [Suspect]
     Indication: DEPRESSION
     Route: 048
     Dates: start: 20060406, end: 20060407

REACTIONS (8)
  - AGGRESSION [None]
  - AGITATION [None]
  - EPISTAXIS [None]
  - EYE SWELLING [None]
  - HYPERHIDROSIS [None]
  - LETHARGY [None]
  - PERIPHERAL COLDNESS [None]
  - TEARFULNESS [None]
